FAERS Safety Report 5535867-7 (Version None)
Quarter: 2007Q4

REPORT INFORMATION
  Report Type: 
  Country: None (occurrence: None)
  Receive Date: 20071120
  Receipt Date: 20070813
  Transmission Date: 20080405
  Serious: No
  Sender: FDA-Public Use
  Company Number: WAES 0708USA02298

PATIENT
  Age: 66 Year
  Sex: Female

DRUGS (10)
  1. JANUVIA [Suspect]
     Indication: TYPE 2 DIABETES MELLITUS
     Dosage: 100 MG/DAILY/PO
     Route: 048
     Dates: start: 20070213
  2. ACTOS [Concomitant]
  3. AVAPRO [Concomitant]
  4. PEPCID [Concomitant]
  5. PROTONIX [Concomitant]
  6. SINGULAIR [Concomitant]
  7. SYNTHROID [Concomitant]
  8. WELLBUTRIN [Concomitant]
  9. ZYRTEC [Concomitant]
  10. GLUCOSAMINE [Concomitant]

REACTIONS (1)
  - HAIR GROWTH ABNORMAL [None]
